FAERS Safety Report 12410247 (Version 1)
Quarter: 2016Q2

REPORT INFORMATION
  Report Type: Spontaneous
  Country: CA (occurrence: CA)
  Receive Date: 20160527
  Receipt Date: 20160527
  Transmission Date: 20160815
  Serious: Yes (Other)
  Sender: FDA-Public Use
  Company Number: CA-ROCHE-1697397

PATIENT
  Age: 50 Year
  Sex: Female

DRUGS (4)
  1. SYMBICORT [Concomitant]
     Active Substance: BUDESONIDE\FORMOTEROL FUMARATE DIHYDRATE
  2. XOLAIR [Suspect]
     Active Substance: OMALIZUMAB
     Indication: ASTHMA
     Route: 058
     Dates: start: 20120815, end: 20151126
  3. XOLAIR [Suspect]
     Active Substance: OMALIZUMAB
     Route: 058
     Dates: start: 20160503
  4. VENTOLIN [Concomitant]
     Active Substance: ALBUTEROL SULFATE

REACTIONS (6)
  - Influenza [Unknown]
  - Asthma [Unknown]
  - Invasive ductal breast carcinoma [Recovered/Resolved with Sequelae]
  - Hypersensitivity [Unknown]
  - Swelling [Unknown]
  - Breast necrosis [Recovered/Resolved with Sequelae]

NARRATIVE: CASE EVENT DATE: 20150918
